FAERS Safety Report 21753703 (Version 4)
Quarter: 2023Q2

REPORT INFORMATION
  Report Type: Report from Study
  Country: US (occurrence: US)
  Receive Date: 20221220
  Receipt Date: 20230523
  Transmission Date: 20230721
  Serious: Yes (Hospitalization, Other)
  Sender: FDA-Public Use
  Company Number: US-002147023-NVSC2022US289421

PATIENT
  Age: 80 Year
  Sex: Female

DRUGS (2)
  1. ENTRESTO [Suspect]
     Active Substance: SACUBITRIL\VALSARTAN
     Indication: Product used for unknown indication
     Dosage: 1 DOSAGE FORM, BID (24/26 MG)
     Route: 065
     Dates: start: 202211
  2. ELIQUIS [Concomitant]
     Active Substance: APIXABAN
     Indication: Product used for unknown indication
     Dosage: UNK
     Route: 065

REACTIONS (10)
  - Loss of consciousness [Recovered/Resolved]
  - Hypotension [Recovering/Resolving]
  - Dehydration [Recovering/Resolving]
  - Dyspnoea [Recovering/Resolving]
  - Rhinorrhoea [Not Recovered/Not Resolved]
  - Alopecia [Unknown]
  - Haematoma [Not Recovered/Not Resolved]
  - Neuroma [Unknown]
  - Condition aggravated [Unknown]
  - Blood potassium decreased [Recovered/Resolved]

NARRATIVE: CASE EVENT DATE: 20221101
